FAERS Safety Report 12855296 (Version 2)
Quarter: 2017Q1

REPORT INFORMATION
  Report Type: Report from Study
  Country: JP (occurrence: JP)
  Receive Date: 20161017
  Receipt Date: 20170201
  Transmission Date: 20170428
  Serious: Yes (Hospitalization, Other)
  Sender: FDA-Public Use
  Company Number: JP-B.I. PHARMACEUTICALS,INC./RIDGEFIELD-2016-BI-40975BI

PATIENT
  Age: 67 Year
  Sex: Male
  Weight: 63.9 kg

DRUGS (3)
  1. MUCOSOLVAN L [Concomitant]
     Active Substance: AMBROXOL HYDROCHLORIDE
     Indication: CHRONIC OBSTRUCTIVE PULMONARY DISEASE
     Route: 048
     Dates: start: 20141111
  2. PULMICORT TURBUHALER [Concomitant]
     Active Substance: BUDESONIDE
     Indication: CHRONIC OBSTRUCTIVE PULMONARY DISEASE
     Dosage: TURBUHALER 112, STRENGTH 200MCG
     Route: 055
     Dates: start: 20150224
  3. BLINDED TIOTROPIUM BROMIDE+OLODATEROL [Suspect]
     Active Substance: OLODATEROL HYDROCHLORIDE\TIOTROPIUM BROMIDE MONOHYDRATE
     Indication: CHRONIC OBSTRUCTIVE PULMONARY DISEASE
     Route: 055
     Dates: start: 20150915, end: 20160913

REACTIONS (1)
  - Macular hole [Recovered/Resolved]

NARRATIVE: CASE EVENT DATE: 20160607
